FAERS Safety Report 5565669-7 (Version None)
Quarter: 2007Q4

REPORT INFORMATION
  Report Type: 
  Country: None (occurrence: None)
  Receive Date: 20071218
  Receipt Date: 20071204
  Transmission Date: 20080405
  Serious: Yes (Other)
  Sender: FDA-Public Use
  Company Number: GB-RANBAXY-2007RR-11896

PATIENT

DRUGS (2)
  1. FLUOXETINE [Suspect]
     Indication: DEPRESSION
     Dosage: 20 MG, UNK
     Route: 048
     Dates: start: 20070405, end: 20070831
  2. CO-CODAMOL [Concomitant]
     Indication: PAIN
     Dosage: 1 DF, QID
     Route: 048
     Dates: start: 20070601

REACTIONS (1)
  - ACTIVATED PARTIAL THROMBOPLASTIN TIME ABNORMAL [None]
